FAERS Safety Report 5528997-7 (Version None)
Quarter: 2007Q4

REPORT INFORMATION
  Report Type: 
  Country: None (occurrence: None)
  Receive Date: 20071126
  Receipt Date: 20071029
  Transmission Date: 20080405
  Serious: Yes (Other)
  Sender: FDA-Public Use
  Company Number: ITPFP-L-20070012

PATIENT
  Age: 76 Year
  Sex: Female

DRUGS (2)
  1. NAVELBINE [Suspect]
     Indication: BREAST CANCER METASTATIC
     Dosage: 50 MG/M2 IV
     Route: 042
  2. GEMCITABINE [Suspect]
     Indication: BREAST CANCER METASTATIC
     Dosage: 2000 MG/M2 IV
     Route: 042

REACTIONS (5)
  - ANAEMIA [None]
  - DISEASE PROGRESSION [None]
  - HAEMATOTOXICITY [None]
  - THROMBOCYTOPENIA [None]
  - TRANSIENT ISCHAEMIC ATTACK [None]
